FAERS Safety Report 24714476 (Version 1)
Quarter: 2024Q4

REPORT INFORMATION
  Report Type: Spontaneous
  Country: CA (occurrence: CA)
  Receive Date: 20241209
  Receipt Date: 20241209
  Transmission Date: 20250114
  Serious: Yes (Other)
  Sender: JOHNSON AND JOHNSON
  Company Number: CA-BAYER-2024A171314

PATIENT
  Sex: Male

DRUGS (1)
  1. XARELTO [Suspect]
     Active Substance: RIVAROXABAN
     Indication: Product used for unknown indication
     Dosage: UNK
     Route: 048

REACTIONS (17)
  - Hypokinesia [Unknown]
  - Presyncope [Unknown]
  - Sensory loss [Unknown]
  - Nasopharyngitis [Unknown]
  - Paraesthesia [Unknown]
  - Brain fog [Unknown]
  - Dry mouth [Unknown]
  - Fatigue [Unknown]
  - Muscle spasms [Unknown]
  - Muscle tightness [Unknown]
  - Palpitations [Unknown]
  - Drug withdrawal syndrome [Unknown]
  - Dysphagia [Unknown]
  - Gait disturbance [Unknown]
  - Dizziness [Unknown]
  - Dyspnoea [Unknown]
  - Suspected product quality issue [Unknown]
